FAERS Safety Report 12950900 (Version 3)
Quarter: 2016Q4

REPORT INFORMATION
  Report Type: Spontaneous
  Country: US (occurrence: US)
  Receive Date: 20161117
  Receipt Date: 20161222
  Transmission Date: 20170207
  Serious: Yes (Death, Other)
  Sender: FDA-Public Use
  Company Number: US-GLAXOSMITHKLINE-US2016169548

PATIENT
  Age: 85 Year
  Sex: Male

DRUGS (8)
  1. AVODART [Suspect]
     Active Substance: DUTASTERIDE
     Indication: PROSTATOMEGALY
     Dosage: 0.5 MG, 1D
     Route: 048
     Dates: start: 2012, end: 20161111
  2. VALIUM [Concomitant]
     Active Substance: DIAZEPAM
  3. COMPAZINE [Concomitant]
     Active Substance: PROCHLORPERAZINE MALEATE
  4. LASIX [Concomitant]
     Active Substance: FUROSEMIDE
  5. PRILOSEC [Concomitant]
     Active Substance: OMEPRAZOLE MAGNESIUM
  6. FLONASE [Concomitant]
     Active Substance: FLUTICASONE PROPIONATE
  7. MORPHINE EXTENDED-RELEASE TABLETS [Concomitant]
  8. PREDNISONE. [Concomitant]
     Active Substance: PREDNISONE

REACTIONS (3)
  - Prostate cancer [Fatal]
  - Polymyalgia rheumatica [Unknown]
  - Bone cancer [Fatal]

NARRATIVE: CASE EVENT DATE: 201410
